FAERS Safety Report 18238983 (Version 1)
Quarter: 2020Q3

REPORT INFORMATION
  Report Type: Spontaneous
  Country: FR (occurrence: FR)
  Receive Date: 20200907
  Receipt Date: 20200907
  Transmission Date: 20201103
  Serious: Yes (Life-Threatening)
  Sender: FDA-Public Use
  Company Number: FR-ASTRAZENECA-2020SF12127

PATIENT
  Age: 68 Year
  Sex: Male
  Weight: 102 kg

DRUGS (1)
  1. CRESTOR [Suspect]
     Active Substance: ROSUVASTATIN CALCIUM
     Indication: HYPERCHOLESTEROLAEMIA
     Route: 048
     Dates: start: 20191118, end: 20200430

REACTIONS (5)
  - Oedema peripheral [Recovered/Resolved]
  - Throat tightness [Recovered/Resolved]
  - Discharge [Recovered/Resolved]
  - Dyspnoea [Recovered/Resolved]
  - Diabetes mellitus inadequate control [Recovered/Resolved]

NARRATIVE: CASE EVENT DATE: 20200420
